FAERS Safety Report 8253694-7 (Version None)
Quarter: 2012Q2

REPORT INFORMATION
  Report Type: 
  Country: None (occurrence: None)
  Receive Date: 20120402
  Receipt Date: 20120312
  Transmission Date: 20120825
  Serious: No
  Sender: FDA-Public Use
  Company Number: US-AMGEN-USASP2012016089

PATIENT

DRUGS (1)
  1. ENBREL [Suspect]
     Indication: PRODUCT USED FOR UNKNOWN INDICATION
     Dosage: UNK

REACTIONS (12)
  - HEADACHE [None]
  - EPISTAXIS [None]
  - COGNITIVE DISORDER [None]
  - MOBILITY DECREASED [None]
  - SKIN DISCOLOURATION [None]
  - PSORIASIS [None]
  - SUNBURN [None]
  - ANGER [None]
  - MEMORY IMPAIRMENT [None]
  - MIGRAINE [None]
  - IRITIS [None]
  - FOOD ALLERGY [None]
